FAERS Safety Report 13447074 (Version 3)
Quarter: 2018Q4

REPORT INFORMATION
  Report Type: Spontaneous
  Country: US (occurrence: US)
  Receive Date: 20170417
  Receipt Date: 20181231
  Transmission Date: 20190204
  Serious: No
  Sender: FDA-Public Use
  Company Number: US-PFIZER INC-2017165920

PATIENT
  Sex: Female
  Weight: 78 kg

DRUGS (4)
  1. RAPAMUNE [Suspect]
     Active Substance: SIROLIMUS
     Indication: LIVER DISORDER
     Dosage: 3 MG, DAILY
     Route: 048
     Dates: start: 201501
  2. RAPAMUNE [Suspect]
     Active Substance: SIROLIMUS
     Indication: LIVER TRANSPLANT
  3. PROGRAF [Concomitant]
     Active Substance: TACROLIMUS\TACROLIMUS ANHYDROUS
     Indication: LIVER DISORDER
     Dosage: 6 (MG) IN MORNING AND 6 (MG) IN NIGHT
     Dates: start: 201203
  4. MAGNESIUM OXIDE. [Concomitant]
     Active Substance: MAGNESIUM OXIDE
     Indication: NUTRITIONAL SUPPLEMENTATION
     Dosage: 400 MG, ONE A DAY
     Dates: start: 201203

REACTIONS (2)
  - Sinusitis [Unknown]
  - Product use in unapproved indication [Not Recovered/Not Resolved]

NARRATIVE: CASE EVENT DATE: 201501
